FAERS Safety Report 4766717-4 (Version None)
Quarter: 2005Q3

REPORT INFORMATION
  Report Type: 
  Country: None (occurrence: None)
  Receive Date: 20050908
  Receipt Date: 20050822
  Transmission Date: 20060218
  Serious: Yes (Hospitalization, Other)
  Sender: FDA-Public Use
  Company Number: 2005-01791

PATIENT
  Age: 77 Year
  Sex: Male
  Weight: 72.1 kg

DRUGS (12)
  1. VELCADE [Suspect]
     Indication: MULTIPLE MYELOMA
     Dosage: 1.30 MG/M2, INTRAVENOUS
     Route: 042
     Dates: start: 20050808
  2. CRESTOR [Concomitant]
  3. LOTENSIN [Concomitant]
  4. INSULIN [Concomitant]
  5. IRON [Concomitant]
  6. DURAGESIC-100 [Concomitant]
  7. PROTONIX [Concomitant]
  8. MOBIC [Concomitant]
  9. VITAMIN C (ASCORBIC ACID) [Concomitant]
  10. LASIX [Concomitant]
  11. ZYRTEC [Concomitant]
  12. STOOL SOFTENER (DOCUSATE SODIUM) [Concomitant]

REACTIONS (19)
  - AMNESIA [None]
  - ASPARTATE AMINOTRANSFERASE INCREASED [None]
  - BILIRUBIN CONJUGATED INCREASED [None]
  - BLOOD ALBUMIN DECREASED [None]
  - BLOOD BILIRUBIN INCREASED [None]
  - BLOOD CALCIUM DECREASED [None]
  - BRAIN NATRIURETIC PEPTIDE INCREASED [None]
  - CONFUSIONAL STATE [None]
  - DEHYDRATION [None]
  - DIALYSIS [None]
  - FIBRIN D DIMER INCREASED [None]
  - HAEMATOCRIT DECREASED [None]
  - HAEMOGLOBIN DECREASED [None]
  - MOOD ALTERED [None]
  - NEUTROPHIL COUNT ABNORMAL [None]
  - PLATELET COUNT INCREASED [None]
  - PROTEIN TOTAL INCREASED [None]
  - RED BLOOD CELL SEDIMENTATION RATE INCREASED [None]
  - RENAL FAILURE ACUTE [None]
